FAERS Safety Report 7888434-4 (Version None)
Quarter: 2011Q4

REPORT INFORMATION
  Report Type: 
  Country: None (occurrence: None)
  Receive Date: 20111103
  Receipt Date: 20111026
  Transmission Date: 20120403
  Serious: Yes (Death, Life-Threatening, Hospitalization, Other)
  Sender: FDA-Public Use
  Company Number: PHHY2011JP88167

PATIENT
  Sex: Male

DRUGS (46)
  1. PURSENNID [Concomitant]
     Dosage: UNK UKN, UNK
     Dates: start: 20110928
  2. HALCION [Concomitant]
     Dosage: 0.25 MG, DAILY
     Route: 048
     Dates: start: 20110927, end: 20111003
  3. MEILAX [Concomitant]
     Dosage: 1 MG, DAILY
     Route: 048
     Dates: start: 20110927
  4. SULFAMETHOXAZOLE [Concomitant]
     Dosage: 2 DF, DAILY
     Route: 048
     Dates: start: 20111002, end: 20111003
  5. DEXTROSE [Concomitant]
     Dosage: 500 ML
     Dates: start: 20111004
  6. DEXTROSE [Concomitant]
     Dosage: 1000 ML
     Dates: end: 20111005
  7. ZOLPIDEM [Concomitant]
     Dosage: 5 MG, DAILY
     Route: 048
     Dates: start: 20110927, end: 20111003
  8. HUMULIN R [Concomitant]
     Dosage: 50 IU
     Dates: start: 20111004
  9. METHYLPREDNISOLONE SODIUM SUCCINATE [Concomitant]
     Dosage: 1000 MG
     Dates: start: 20111005, end: 20111005
  10. TASIGNA [Suspect]
     Indication: CHRONIC MYELOID LEUKAEMIA
     Dosage: 150 MG, QD
     Route: 048
     Dates: start: 20111003, end: 20111003
  11. ALLOPURINOL [Concomitant]
     Dosage: 200 MG, DAILY
     Route: 048
     Dates: start: 20110927, end: 20111003
  12. HYDREA [Concomitant]
     Dosage: 1500 MG, DAILY
     Dates: start: 20111002, end: 20111003
  13. HARTMAN G-3 [Concomitant]
     Dosage: 500 ML, DAILY
     Dates: start: 20110927, end: 20111003
  14. FAMOTIDINE [Concomitant]
     Dosage: 20 MG, DAILY
     Dates: start: 20110927, end: 20111003
  15. SILECE [Concomitant]
     Dosage: 2 MG, DAILY
     Route: 048
     Dates: start: 20110927, end: 20111002
  16. TOFRANIL [Concomitant]
     Dosage: 30 MG, DAILY
     Route: 048
     Dates: start: 20110927
  17. DEXALTIN [Concomitant]
     Dosage: UNK UKN, UNK
  18. MUCODYNE [Concomitant]
     Dosage: 1500 MG, DAILY
     Route: 048
     Dates: start: 20111001
  19. LENDORMIN [Concomitant]
     Dosage: UNK UKN, UNK
     Route: 048
     Dates: start: 20111001
  20. ADONA [Concomitant]
     Dosage: 100 MG, DAILY
     Dates: start: 20111003
  21. GLYCYRRHIZIC ACID, AMMONIUM SALT [Concomitant]
     Dosage: 60 ML
     Dates: start: 20111005, end: 20111005
  22. CALCIUM CARBONATE [Concomitant]
     Dosage: 10 ML
     Dates: start: 20111004
  23. MAGNESIUM OXIDE [Concomitant]
     Dosage: 1 G, DAILY
     Route: 048
     Dates: start: 20111001
  24. SEISHOKU [Concomitant]
     Dosage: 20 ML, DAILY
     Dates: start: 20111002
  25. FUNGUARD [Concomitant]
     Dosage: 150 MG, UNK
     Dates: start: 20111002, end: 20111004
  26. SODIUM BICARBONATE [Concomitant]
     Dosage: 120 ML
     Dates: end: 20111005
  27. TASIGNA [Suspect]
     Dosage: 300 MG DAILY
     Route: 048
     Dates: start: 20111004
  28. HYDREA [Concomitant]
     Dosage: 1000 MG, DAILY
     Route: 048
     Dates: start: 20110928, end: 20111001
  29. MUCODYNE [Concomitant]
     Dosage: 1000 MG, DAILY
     Route: 048
  30. PACIL [Concomitant]
     Dosage: 1000 MG, DAILY
     Dates: start: 20111002
  31. SEISHOKU [Concomitant]
     Dosage: 10 ML, DAILY
  32. SEISHOKU [Concomitant]
     Dosage: 100 ML, DAILY
     Dates: start: 20111002, end: 20111004
  33. MEILAX [Concomitant]
     Dosage: 1 MG, DAILY
  34. LAXOBERON [Concomitant]
     Dosage: UNK UKN, UNK
     Dates: start: 20110929
  35. TPN ELECTROLYTES IN PLASTIC CONTAINER [Concomitant]
     Dosage: 500 ML, DAILY
     Dates: start: 20110927, end: 20111003
  36. SODIUM CHLORIDE SOLUTION [Concomitant]
     Dosage: 500 MG, DAILY
     Dates: start: 20110927
  37. NOVO HEPARIN [Concomitant]
     Dosage: 10000 IU, DAILY
     Dates: start: 20110927
  38. TRANEXAMIC ACID [Concomitant]
     Dosage: 1 G, DAILY
     Dates: start: 20111003
  39. PENTAZOCINE LACTATE [Concomitant]
     Dosage: 30 MG, UNK
     Dates: start: 20111004, end: 20111004
  40. HUMULIN R [Concomitant]
     Dosage: 60 IU
     Dates: end: 20111005
  41. TOFRANIL [Concomitant]
     Dosage: 10 MG, DAILY
     Route: 048
  42. LOXONIN [Concomitant]
     Dosage: UNK UKN, UNK
     Route: 048
     Dates: start: 20110927
  43. ACETAMINOPHEN [Concomitant]
     Dosage: UNK UKN, UNK
     Dates: start: 20110928
  44. PREDNISOLONE [Concomitant]
     Dosage: 60 MG, DAILY
     Dates: start: 20111002, end: 20111003
  45. SODIUM BICARBONATE [Concomitant]
     Dosage: 540 ML
     Dates: start: 20111004
  46. KAYTWO N [Concomitant]
     Dosage: 20 MG
     Dates: start: 20111005, end: 20111005

REACTIONS (19)
  - NEOPLASM PROGRESSION [None]
  - MYELOPROLIFERATIVE DISORDER [None]
  - DISSEMINATED INTRAVASCULAR COAGULATION [None]
  - HYPERGLYCAEMIA [None]
  - ASPARTATE AMINOTRANSFERASE INCREASED [None]
  - DYSPNOEA [None]
  - ABDOMINAL PAIN [None]
  - SUBCUTANEOUS HAEMATOMA [None]
  - WHITE BLOOD CELL COUNT INCREASED [None]
  - MALAISE [None]
  - HEPATITIS FULMINANT [None]
  - SPLENOMEGALY [None]
  - ALANINE AMINOTRANSFERASE INCREASED [None]
  - HYPERBILIRUBINAEMIA [None]
  - COAGULOPATHY [None]
  - DECREASED APPETITE [None]
  - APHAGIA [None]
  - COMA [None]
  - METABOLIC ACIDOSIS [None]
